FAERS Safety Report 23530934 (Version 3)
Quarter: 2024Q3

REPORT INFORMATION
  Report Type: Spontaneous
  Country: AU (occurrence: AU)
  Receive Date: 20240216
  Receipt Date: 20240902
  Transmission Date: 20241016
  Serious: Yes (Death, Life-Threatening, Hospitalization)
  Sender: BAUSCH AND LOMB
  Company Number: AU-BAUSCH-BL-2024-002269

PATIENT
  Age: 48 Year
  Sex: Male

DRUGS (11)
  1. DEXAMETHASONE [Suspect]
     Active Substance: DEXAMETHASONE
     Indication: COVID-19
     Dosage: FOR THE FIRST 10 DAYS OF HIS HOSPITAL ADMISSION
     Route: 042
     Dates: start: 2022
  2. HYDROCORTISONE [Suspect]
     Active Substance: HYDROCORTISONE\HYDROCORTISONE ACETATE
     Indication: COVID-19
     Dosage: BETWEEN 50 TO 100 MG
     Route: 042
     Dates: start: 2022
  3. TOCILIZUMAB [Suspect]
     Active Substance: TOCILIZUMAB
     Indication: COVID-19
     Route: 065
     Dates: start: 202201, end: 202201
  4. CEFEPIME [Concomitant]
     Active Substance: CEFEPIME HYDROCHLORIDE
     Indication: Anti-infective therapy
     Route: 065
     Dates: start: 2022
  5. MEROPENEM [Concomitant]
     Active Substance: MEROPENEM
     Indication: Anti-infective therapy
     Route: 065
     Dates: start: 2022
  6. PIPERACILLIN SODIUM\TAZOBACTAM SODIUM [Concomitant]
     Active Substance: PIPERACILLIN SODIUM\TAZOBACTAM SODIUM
     Indication: Prophylaxis
     Route: 065
     Dates: start: 2022
  7. VORICONAZOLE [Concomitant]
     Active Substance: VORICONAZOLE
     Indication: COVID-19
     Dosage: LOADING DOSE
     Route: 042
  8. VORICONAZOLE [Concomitant]
     Active Substance: VORICONAZOLE
     Route: 042
  9. OXYGEN [Concomitant]
     Active Substance: OXYGEN
     Indication: Oxygen therapy
     Dosage: HIGH FLOW NASAL PRONG
     Route: 065
     Dates: start: 2022
  10. REMDESIVIR [Concomitant]
     Active Substance: REMDESIVIR
     Indication: COVID-19
     Dosage: LOADING DOSE
     Route: 065
     Dates: start: 2022
  11. REMDESIVIR [Concomitant]
     Active Substance: REMDESIVIR
     Route: 065
     Dates: start: 2022, end: 2022

REACTIONS (8)
  - Pneumonia cytomegaloviral [Fatal]
  - Bronchopulmonary aspergillosis [Fatal]
  - Pulmonary haemorrhage [Fatal]
  - Pulmonary necrosis [Fatal]
  - Bronchopleural fistula [Unknown]
  - Klebsiella infection [Unknown]
  - Stenotrophomonas infection [Unknown]
  - Enterococcal infection [Unknown]

NARRATIVE: CASE EVENT DATE: 20220101
